FAERS Safety Report 8375532-4 (Version None)
Quarter: 2012Q1

REPORT INFORMATION
  Report Type: 
  Country: None (occurrence: None)
  Receive Date: 20120323
  Receipt Date: 20111125
  Transmission Date: 20120608
  Serious: Yes (Other)
  Sender: FDA-Public Use
  Company Number: 163-21880-11113638

PATIENT
  Age: 78 Year
  Sex: Male

DRUGS (15)
  1. DEXAMETHASONE [Concomitant]
  2. AMLODIPINE [Concomitant]
  3. MELOXICAM [Concomitant]
  4. MULTIVITAMIN [Concomitant]
  5. PRADAXA (DABIGATRAN ETEXILATE MESILATE) [Concomitant]
  6. FINASTERIDE [Concomitant]
  7. FOLTX (TRIOBE) [Concomitant]
  8. EYE CAP (ICAPS) [Concomitant]
  9. BACTRIM [Concomitant]
  10. DILTIAZEM [Concomitant]
  11. REVLIMID [Suspect]
     Indication: MULTIPLE MYELOMA
     Dosage: 25 MG, X21 DAYS, PO
     Route: 048
     Dates: start: 20111023
  12. ACYCLOVIR [Concomitant]
  13. ASPIRIN [Concomitant]
  14. FOLIC ACID [Concomitant]
  15. ZOMETA [Concomitant]

REACTIONS (1)
  - ATRIAL FIBRILLATION [None]
